FAERS Safety Report 15753158 (Version 1)
Quarter: 2018Q4

REPORT INFORMATION
  Report Type: Spontaneous
  Country: NL (occurrence: NL)
  Receive Date: 20181222
  Receipt Date: 20181222
  Transmission Date: 20190205
  Serious: Yes (Hospitalization)
  Sender: FDA-Public Use
  Company Number: NL-TEVA-2018-NL-989814

PATIENT
  Age: 73 Year
  Sex: Female
  Weight: 66 kg

DRUGS (2)
  1. VALSARTAN PILVORM, 160 EN 80 MG [Suspect]
     Active Substance: VALSARTAN
     Dosage: DAARNA 80MG 1 X 1 PER DAG
     Dates: end: 20180801
  2. VALSARTAN PILVORM, 160 EN 80 MG [Suspect]
     Active Substance: VALSARTAN
     Indication: HYPERTENSION
     Dosage: 160 MILLIGRAM DAILY; FIRST 160 MG 1 X 1 PER DAY
     Route: 065
     Dates: start: 20000101

REACTIONS (1)
  - Colon cancer [Recovered/Resolved]

NARRATIVE: CASE EVENT DATE: 20180901
